FAERS Safety Report 9494085 (Version 1)
Quarter: 2013Q3

REPORT INFORMATION
  Report Type: Spontaneous
  Country: CN (occurrence: CN)
  Receive Date: 20130903
  Receipt Date: 20130903
  Transmission Date: 20140515
  Serious: Yes (Other)
  Sender: FDA-Public Use
  Company Number: CN-JNJFOC-20130900472

PATIENT
  Age: 40 Year
  Sex: Male
  Weight: 70 kg

DRUGS (1)
  1. BAND-AID PATCH [Suspect]
     Indication: LACERATION
     Route: 003
     Dates: start: 20091004, end: 20091005

REACTIONS (1)
  - Wound infection [Recovered/Resolved]
